FAERS Safety Report 21606265 (Version 3)
Quarter: 2023Q1

REPORT INFORMATION
  Report Type: Report from Study
  Country: US (occurrence: None)
  Receive Date: 20221117
  Receipt Date: 20230130
  Transmission Date: 20230417
  Serious: Yes (Hospitalization)
  Sender: FDA-Public Use
  Company Number: US-Merck Healthcare KGaA-9365518

PATIENT
  Age: 61 Year
  Sex: Female
  Weight: 93 kg

DRUGS (6)
  1. REBIF [Suspect]
     Active Substance: INTERFERON BETA-1A
     Indication: Multiple sclerosis
     Dates: start: 2012
  2. REBIF [Suspect]
     Active Substance: INTERFERON BETA-1A
     Route: 058
     Dates: start: 20130409
  3. WARFARIN [Concomitant]
     Active Substance: WARFARIN
     Indication: Deep vein thrombosis
     Dates: end: 2012
  4. WARFARIN [Concomitant]
     Active Substance: WARFARIN
     Indication: Pulmonary embolism
  5. WARFARIN [Concomitant]
     Active Substance: WARFARIN
     Indication: Protein C deficiency
  6. WARFARIN [Concomitant]
     Active Substance: WARFARIN
     Indication: Protein S deficiency

REACTIONS (4)
  - Syncope [Unknown]
  - Head injury [Unknown]
  - Subarachnoid haemorrhage [Unknown]
  - Blood pressure increased [Unknown]

NARRATIVE: CASE EVENT DATE: 20220630
